FAERS Safety Report 22594090 (Version 3)
Quarter: 2024Q2

REPORT INFORMATION
  Report Type: Spontaneous
  Country: FR (occurrence: FR)
  Receive Date: 20230613
  Receipt Date: 20240603
  Transmission Date: 20240716
  Serious: Yes (Death, Other)
  Sender: FDA-Public Use
  Company Number: FR-002147023-NVSC2023FR133844

PATIENT
  Age: 48 Year
  Sex: Male

DRUGS (8)
  1. CYCLOSPORINE [Suspect]
     Active Substance: CYCLOSPORINE
     Indication: Product used for unknown indication
     Dosage: 150 MG
     Route: 048
     Dates: start: 20200115, end: 20200228
  2. CYCLOSPORINE [Suspect]
     Active Substance: CYCLOSPORINE
     Dosage: 220 MG
     Route: 065
     Dates: start: 20200115, end: 20200430
  3. CYCLOPHOSPHAMIDE [Suspect]
     Active Substance: CYCLOPHOSPHAMIDE
     Indication: Product used for unknown indication
     Dosage: 3650 MG
     Route: 042
     Dates: start: 20200113, end: 20200114
  4. MYCOPHENOLATE MOFETIL [Suspect]
     Active Substance: MYCOPHENOLATE MOFETIL
     Indication: Product used for unknown indication
     Dosage: 2 G
     Route: 048
     Dates: start: 20200115, end: 20200306
  5. MYCOPHENOLATE MOFETIL [Suspect]
     Active Substance: MYCOPHENOLATE MOFETIL
     Dosage: 2250 MG
     Route: 065
     Dates: start: 20200115, end: 20200306
  6. FLUDARABINE [Suspect]
     Active Substance: FLUDARABINE PHOSPHATE
     Indication: Product used for unknown indication
     Dosage: 306 MG
     Route: 042
     Dates: start: 20200105, end: 20200108
  7. BUSULFAN [Suspect]
     Active Substance: BUSULFAN
     Indication: Product used for unknown indication
     Dosage: 701 MG
     Route: 042
     Dates: start: 20200105, end: 20200107
  8. THIOTEPA [Suspect]
     Active Substance: THIOTEPA
     Indication: Product used for unknown indication
     Dosage: 730 MG
     Route: 042
     Dates: start: 20200103, end: 20200104

REACTIONS (2)
  - Disease progression [Fatal]
  - Acute graft versus host disease in skin [Recovering/Resolving]

NARRATIVE: CASE EVENT DATE: 20200221
